FAERS Safety Report 8625042-1 (Version None)
Quarter: 2012Q3

REPORT INFORMATION
  Report Type: 
  Country: None (occurrence: None)
  Receive Date: 20120827
  Receipt Date: 20120816
  Transmission Date: 20120928
  Serious: Yes (Hospitalization)
  Sender: FDA-Public Use
  Company Number: FR-ASTRAZENECA-2012SE60105

PATIENT
  Age: 76 Year
  Sex: Male

DRUGS (6)
  1. IBUPROFEN [Suspect]
     Indication: HEADACHE
     Route: 048
     Dates: start: 20111227
  2. NICARDIPINE HCL [Concomitant]
  3. ZESTRIL [Suspect]
     Indication: HYPERTENSION
     Route: 048
     Dates: end: 20111229
  4. SYMBICORT [Concomitant]
  5. TRUSOPT [Concomitant]
  6. RASILEZ [Suspect]
     Indication: HYPERTENSION
     Route: 048
     Dates: end: 20111229

REACTIONS (5)
  - HYPERKALAEMIA [None]
  - HEADACHE [None]
  - RENAL FAILURE ACUTE [None]
  - ELECTROCARDIOGRAM REPOLARISATION ABNORMALITY [None]
  - ANURIA [None]
